FAERS Safety Report 11909608 (Version 2)
Quarter: 2016Q1

REPORT INFORMATION
  Report Type: Spontaneous
  Country: IT (occurrence: IT)
  Receive Date: 20160112
  Receipt Date: 20160115
  Transmission Date: 20160526
  Serious: Yes (Other)
  Sender: FDA-Public Use
  Company Number: IT-009507513-1601ITA002522

PATIENT
  Age: 20 Year
  Sex: Male
  Weight: 78.4 kg

DRUGS (12)
  1. MIDAZOLAM [Concomitant]
     Active Substance: MIDAZOLAM\MIDAZOLAM HYDROCHLORIDE
     Dosage: 1 MG, UNK
     Route: 042
  2. REMIFENTANIL HYDROCHLORIDE [Concomitant]
     Active Substance: REMIFENTANIL HYDROCHLORIDE
     Dosage: 0.11 MICROGRAM PER KILOGRAM, UNK
  3. PREDNISONE. [Interacting]
     Active Substance: PREDNISONE
     Dosage: 30 MG, QD
     Route: 048
  4. PREDNISONE. [Interacting]
     Active Substance: PREDNISONE
     Dosage: LAST DOSE (5 MG) TWO MONTHS BEFORE THE SCHEDULED SURGERY
     Route: 048
  5. PROPOFOL. [Concomitant]
     Active Substance: PROPOFOL
     Dosage: 200 MG, ONCE
  6. PROPOFOL. [Concomitant]
     Active Substance: PROPOFOL
     Dosage: 200 MG, ONCE
  7. CIPROFLOXACIN. [Concomitant]
     Active Substance: CIPROFLOXACIN
     Dosage: 200 MG, ONE DAY
     Route: 042
  8. ATROPINE. [Concomitant]
     Active Substance: ATROPINE
     Dosage: 0.7 MG, UNK
     Route: 042
  9. ROCURONIUM BROMIDE. [Suspect]
     Active Substance: ROCURONIUM BROMIDE
     Dosage: 0.6 MG/KG, UNK
  10. FENTANYL. [Concomitant]
     Active Substance: FENTANYL
     Dosage: 0.05 MG, UNK
     Route: 042
  11. ROCURONIUM BROMIDE. [Interacting]
     Active Substance: ROCURONIUM BROMIDE
     Dosage: 50 MG, ONCE
  12. BETAMETHASONE. [Interacting]
     Active Substance: BETAMETHASONE
     Dosage: 4 MG, BID

REACTIONS (2)
  - Drug resistance [Unknown]
  - Drug interaction [Unknown]
